FAERS Safety Report 20838508 (Version 1)
Quarter: 2022Q2

REPORT INFORMATION
  Report Type: Spontaneous
  Country: US (occurrence: None)
  Receive Date: 20220517
  Receipt Date: 20220517
  Transmission Date: 20220721
  Serious: No
  Sender: FDA-Public Use
  Company Number: 2022A179893

PATIENT
  Sex: Female
  Weight: 61.2 kg

DRUGS (1)
  1. SYMBICORT [Suspect]
     Active Substance: BUDESONIDE\FORMOTEROL FUMARATE DIHYDRATE
     Indication: Asthma
     Dosage: SYMBICORT,160/4.5
     Route: 055
     Dates: start: 202202

REACTIONS (13)
  - Illness [Unknown]
  - Migraine [Unknown]
  - Paraesthesia [Unknown]
  - Disorientation [Unknown]
  - Mobility decreased [Unknown]
  - Dysstasia [Unknown]
  - Muscular weakness [Unknown]
  - Motor dysfunction [Unknown]
  - Near death experience [Unknown]
  - Headache [Unknown]
  - Tremor [Unknown]
  - Oral candidiasis [Unknown]
  - Drug hypersensitivity [Unknown]
